FAERS Safety Report 8997063 (Version 1)
Quarter: 2013Q1

REPORT INFORMATION
  Report Type: Spontaneous
  Country: AU (occurrence: AU)
  Receive Date: 20130104
  Receipt Date: 20130104
  Transmission Date: 20140127
  Serious: Yes (Other)
  Sender: FDA-Public Use
  Company Number: AU-GLAXOSMITHKLINE-A1006536A

PATIENT
  Sex: Female

DRUGS (2)
  1. NICORETTE [Suspect]
     Indication: SMOKING CESSATION THERAPY
     Dosage: 4MG TWELVE TIMES PER DAY
     Route: 002
     Dates: start: 20121203, end: 20121206
  2. UNSPECIFIED MEDICATION [Concomitant]

REACTIONS (3)
  - Myocardial infarction [Recovered/Resolved]
  - Oropharyngeal pain [Unknown]
  - Chest pain [Unknown]
